FAERS Safety Report 9907202 (Version 1)
Quarter: 2014Q1

REPORT INFORMATION
  Report Type: Spontaneous
  Country: US (occurrence: US)
  Receive Date: 20140218
  Receipt Date: 20140218
  Transmission Date: 20141002
  Serious: Yes (Hospitalization)
  Sender: FDA-Public Use
  Company Number: US-SA-2014SA019163

PATIENT
  Sex: Female

DRUGS (2)
  1. LANTUS SOLOSTAR [Suspect]
     Dosage: TAKEN FROM- SEVERAL YEARS
     Route: 058
  2. SOLOSTAR [Concomitant]
     Dosage: TAKEN FROM- SEVERAL YEARS

REACTIONS (1)
  - Adverse event [Unknown]
